FAERS Safety Report 9926093 (Version 4)
Quarter: 2014Q2

REPORT INFORMATION
  Report Type: Report from Study
  Country: FR (occurrence: FR)
  Receive Date: 20140226
  Receipt Date: 20140519
  Transmission Date: 20141212
  Serious: Yes (Hospitalization)
  Sender: FDA-Public Use
  Company Number: FR-CELGENEUS-056-21880-14013376

PATIENT
  Age: 65 Year
  Sex: Male
  Weight: 80 kg

DRUGS (16)
  1. REVLIMID [Suspect]
     Indication: CENTRAL NERVOUS SYSTEM LYMPHOMA
     Route: 048
     Dates: start: 20131226, end: 20131231
  2. REVLIMID [Suspect]
     Route: 048
     Dates: end: 20140115
  3. MABTHERA [Suspect]
     Indication: CENTRAL NERVOUS SYSTEM LYMPHOMA
     Dosage: 740 MILLIGRAM
     Route: 065
     Dates: start: 20131226, end: 20131226
  4. NEODEX [Suspect]
     Indication: CENTRAL NERVOUS SYSTEM LYMPHOMA
     Dosage: 40 MILLIGRAM
     Route: 048
     Dates: start: 20131226, end: 20131229
  5. ZELITREX [Concomitant]
     Indication: INFECTION
     Route: 048
  6. KARDEGIC [Concomitant]
     Indication: MYOCARDIAL INFARCTION
     Dosage: 75 MILLIGRAM
     Route: 048
  7. LANTUS [Concomitant]
     Indication: DIABETES MELLITUS
     Route: 041
  8. KEPPRA [Concomitant]
     Indication: EPILEPSY
     Route: 048
  9. LEXOTANIL [Concomitant]
     Indication: ANXIETY
     Route: 048
  10. GELTIM [Concomitant]
     Indication: GLAUCOMA
     Dosage: 1 APPLICATION
     Route: 065
  11. ATARAX [Concomitant]
     Indication: ANXIOLYTIC THERAPY
     Dosage: 25 MILLIGRAM
     Route: 048
  12. LEXOMIL [Concomitant]
     Indication: ANXIOLYTIC THERAPY
     Dosage: 1/4
     Route: 048
  13. TAHOR [Concomitant]
     Indication: ANXIOLYTIC THERAPY
     Dosage: 10 MILLIGRAM
     Route: 048
  14. COVERSYL [Concomitant]
     Indication: ANXIOLYTIC THERAPY
     Dosage: 4 MILLIGRAM
     Route: 065
  15. XATRAL [Concomitant]
     Indication: ANXIOLYTIC THERAPY
     Dosage: 2.5 MILLIGRAM
     Route: 065
  16. MOPRAL [Concomitant]
     Indication: ANXIOLYTIC THERAPY
     Dosage: 20 MILLIGRAM
     Route: 065

REACTIONS (2)
  - Epilepsy [Recovered/Resolved]
  - Pyrexia [Recovered/Resolved]
